FAERS Safety Report 18745937 (Version 1)
Quarter: 2021Q1

REPORT INFORMATION
  Report Type: Spontaneous
  Country: US (occurrence: US)
  Receive Date: 20210115
  Receipt Date: 20210115
  Transmission Date: 20210419
  Serious: Yes (Other)
  Sender: FDA-Public Use
  Company Number: US-FRESENIUS KABI-FK202100537

PATIENT
  Age: 14 Year
  Sex: Female

DRUGS (4)
  1. CISPLATIN (MANUFACTURER UNKNOWN) [Suspect]
     Active Substance: CISPLATIN
     Indication: OVARIAN GERM CELL TERATOMA
     Dosage: 20 MG/ M2X5 DAYS
     Route: 065
  2. BLEOMYCIN [Suspect]
     Active Substance: BLEOMYCIN SULFATE
     Indication: OVARIAN GERM CELL TERATOMA
     Dosage: 15MG/ M2X1 DAY
     Route: 065
  3. ETOPOSIDE (MANUFACTURER UNKNOWN) [Suspect]
     Active Substance: ETOPOSIDE
     Indication: OVARIAN GERM CELL TERATOMA
     Dosage: 100 MG/ M2X5 DAYS
     Route: 065
  4. ESTRADIOL. [Concomitant]
     Active Substance: ESTRADIOL
     Indication: OVARIAN GERM CELL TERATOMA

REACTIONS (1)
  - Teratoma [Recovering/Resolving]
